FAERS Safety Report 7745197-0 (Version None)
Quarter: 2011Q3

REPORT INFORMATION
  Report Type: 
  Country: None (occurrence: None)
  Receive Date: 20110908
  Receipt Date: 20110823
  Transmission Date: 20111222
  Serious: Yes (Hospitalization, Disabling, Other)
  Sender: FDA-Public Use
  Company Number: AUR-APL-2011-04768

PATIENT
  Age: 92 Year
  Sex: Female
  Weight: 63.49 kg

DRUGS (6)
  1. METOPROLOL TARTRATE [Concomitant]
  2. DONEPEZIL HCL [Concomitant]
  3. LISINOPRIL AND HYDROCHLOROTHIAZIDE [Suspect]
     Indication: HYPERTENSION
     Dates: end: 20110101
  4. METFORMIN HCL [Concomitant]
  5. NAMENDA [Concomitant]
  6. NORVASC [Suspect]
     Indication: HYPERTENSION
     Dosage: (5 MG, 1 D), ORAL
     Route: 048
     Dates: start: 20110809

REACTIONS (4)
  - FATIGUE [None]
  - CEREBRAL DISORDER [None]
  - SOMNOLENCE [None]
  - AIR EMBOLISM [None]
